FAERS Safety Report 21011118 (Version 2)
Quarter: 2022Q3

REPORT INFORMATION
  Report Type: Spontaneous
  Country: US (occurrence: US)
  Receive Date: 20220627
  Receipt Date: 20220711
  Transmission Date: 20221026
  Serious: Yes (Death, Hospitalization)
  Sender: FDA-Public Use
  Company Number: US-ASTELLAS-2022US008335

PATIENT
  Age: 85 Year
  Sex: Female

DRUGS (21)
  1. BENDAMUSTINE HYDROCHLORIDE [Suspect]
     Active Substance: BENDAMUSTINE HYDROCHLORIDE
     Indication: Diffuse large B-cell lymphoma
     Dosage: OVER 9 YEARS
     Route: 042
  2. DOXORUBICIN [Suspect]
     Active Substance: DOXORUBICIN
     Indication: Diffuse large B-cell lymphoma
     Route: 065
  3. ETOPOSIDE [Suspect]
     Active Substance: ETOPOSIDE
     Indication: Diffuse large B-cell lymphoma
     Route: 065
  4. PREDNISONE [Suspect]
     Active Substance: PREDNISONE
     Indication: Diffuse large B-cell lymphoma
     Route: 065
  5. VINCRISTINE [Suspect]
     Active Substance: VINCRISTINE
     Indication: Diffuse large B-cell lymphoma
     Route: 065
  6. AZITHROMYCIN [Suspect]
     Active Substance: AZITHROMYCIN
     Indication: Cryptosporidiosis infection
     Dosage: 500 MILLIGRAM DAILY;
     Route: 065
  7. CYCLOPHOSPHAMIDE [Suspect]
     Active Substance: CYCLOPHOSPHAMIDE
     Indication: Diffuse large B-cell lymphoma
     Route: 065
  8. LISOCABTAGENE MARALEUCEL [Suspect]
     Active Substance: LISOCABTAGENE MARALEUCEL
     Indication: Diffuse large B-cell lymphoma
     Route: 065
  9. RITUXIMAB [Suspect]
     Active Substance: RITUXIMAB
     Indication: Diffuse large B-cell lymphoma
     Route: 065
  10. NITAZOXANIDE [Suspect]
     Active Substance: NITAZOXANIDE
     Indication: Cryptosporidiosis infection
     Dosage: 1000 MILLIGRAM DAILY;
     Route: 065
  11. PAROMOMYCIN [Suspect]
     Active Substance: PAROMOMYCIN
     Indication: Cryptosporidiosis infection
     Dosage: 2000 MILLIGRAM DAILY;
     Route: 065
  12. DIETARY SUPPLEMENT [Suspect]
     Active Substance: DIETARY SUPPLEMENT
     Indication: Cryptosporidiosis infection
     Dosage: 4G-35 KCAL/7G (THREE TIMES DAILY)
     Route: 048
  13. CLOFAZIMINE [Suspect]
     Active Substance: CLOFAZIMINE
     Indication: Cryptosporidiosis infection
     Dosage: 300 MILLIGRAM DAILY;
     Route: 065
  14. CLOFAZIMINE [Suspect]
     Active Substance: CLOFAZIMINE
     Dosage: 100 MILLIGRAM DAILY; MAINTENANCE DOSE
     Route: 065
  15. RIFAXIMIN [Suspect]
     Active Substance: RIFAXIMIN
     Indication: Cryptosporidiosis infection
     Dosage: 1650 MILLIGRAM DAILY;
     Route: 065
  16. IBRITUMOMAB TIUXETAN [Concomitant]
     Active Substance: IBRITUMOMAB TIUXETAN
     Indication: Diffuse large B-cell lymphoma
     Route: 065
  17. NIVOLUMAB [Concomitant]
     Active Substance: NIVOLUMAB
     Indication: Diffuse large B-cell lymphoma
     Route: 065
  18. LENALIDOMIDE [Concomitant]
     Active Substance: LENALIDOMIDE
     Indication: Diffuse large B-cell lymphoma
     Route: 065
  19. IDELALISIB [Concomitant]
     Active Substance: IDELALISIB
     Indication: Diffuse large B-cell lymphoma
     Route: 065
  20. OBINUTUZUMAB [Concomitant]
     Active Substance: OBINUTUZUMAB
     Indication: Diffuse large B-cell lymphoma
     Route: 065
  21. IMMUNE GLOBULIN NOS [Concomitant]
     Active Substance: IMMUNE GLOBULIN NOS
     Indication: Hypogammaglobulinaemia
     Route: 065

REACTIONS (6)
  - Treatment failure [Fatal]
  - Respiratory failure [Fatal]
  - Hypoalbuminaemia [Unknown]
  - Cryptosporidiosis infection [Recovering/Resolving]
  - Product use issue [Unknown]
  - Off label use [Unknown]
